FAERS Safety Report 16993940 (Version 1)
Quarter: 2019Q4

REPORT INFORMATION
  Report Type: Spontaneous
  Country: JP (occurrence: JP)
  Receive Date: 20191105
  Receipt Date: 20191105
  Transmission Date: 20200122
  Serious: Yes (Other)
  Sender: FDA-Public Use
  Company Number: NVSJ2019JP001889

PATIENT
  Age: 85 Year
  Sex: Male
  Weight: 52 kg

DRUGS (2)
  1. ETHAMBUTOL [Suspect]
     Active Substance: ETHAMBUTOL HYDROCHLORIDE
     Indication: PULMONARY TUBERCULOSIS
     Dosage: 750 MG
     Route: 048
  2. RIFAMPICIN [Suspect]
     Active Substance: RIFAMPIN
     Indication: PULMONARY TUBERCULOSIS
     Dosage: 450 MG
     Route: 048
     Dates: start: 201701, end: 201705

REACTIONS (8)
  - Full blood count decreased [Recovering/Resolving]
  - Megakaryocytes decreased [Recovering/Resolving]
  - Aplastic anaemia [Recovering/Resolving]
  - Platelet count decreased [Recovering/Resolving]
  - Granulocyte count decreased [Recovering/Resolving]
  - White blood cell count decreased [Recovering/Resolving]
  - Haemoglobin decreased [Recovering/Resolving]
  - Erythroblast count decreased [Recovering/Resolving]
